FAERS Safety Report 23218821 (Version 3)
Quarter: 2023Q4

REPORT INFORMATION
  Report Type: Report from Study
  Country: US (occurrence: US)
  Receive Date: 20231122
  Receipt Date: 20231222
  Transmission Date: 20240110
  Serious: Yes (Hospitalization)
  Sender: FDA-Public Use
  Company Number: US-002147023-NVSC2023US248602

PATIENT
  Sex: Male

DRUGS (1)
  1. ENTRESTO [Suspect]
     Active Substance: SACUBITRIL\VALSARTAN
     Indication: Product used for unknown indication
     Dosage: UNK UNK, BID
     Route: 048
     Dates: start: 202311

REACTIONS (7)
  - Gastritis [Unknown]
  - Heart rate decreased [Unknown]
  - Disturbance in attention [Unknown]
  - Feeding disorder [Unknown]
  - Dehydration [Unknown]
  - Abdominal discomfort [Unknown]
  - Product dose omission issue [Unknown]
